FAERS Safety Report 7841685-7 (Version None)
Quarter: 2011Q4

REPORT INFORMATION
  Report Type: 
  Country: None (occurrence: None)
  Receive Date: 20111025
  Receipt Date: 20111019
  Transmission Date: 20120403
  Serious: Yes (Death)
  Sender: FDA-Public Use
  Company Number: DE-ASTELLAS-2011EU007488

PATIENT
  Age: 72 Year
  Sex: Male
  Weight: 55 kg

DRUGS (7)
  1. MEROPENEM [Concomitant]
     Dosage: 1 G, UNKNOWN/D
     Route: 065
     Dates: start: 20110816, end: 20110826
  2. CLARITHROMYCIN [Concomitant]
     Dosage: 0.5 G, UNKNOWN/D
     Route: 065
     Dates: start: 20110816, end: 20110826
  3. PREDNISOLONE SODIUM SUCCINATE INJ [Concomitant]
     Dosage: 5 MG, UNKNOWN/D
     Route: 065
     Dates: start: 20110818, end: 20110826
  4. FILGRASTIM [Concomitant]
     Dosage: 300 MG, UNKNOWN/D
     Route: 065
     Dates: start: 20110816, end: 20110826
  5. VANCOMYCIN HCL [Concomitant]
     Dosage: 750 MG, UNKNOWN/D
     Route: 065
     Dates: start: 20110816, end: 20110826
  6. MICAFUNGIN INJECTION [Suspect]
     Indication: PROPHYLAXIS
     Dosage: 100 MG, UNKNOWN/D
     Route: 065
     Dates: start: 20110816, end: 20110826
  7. ENOXAPARIN SODIUM [Concomitant]
     Dosage: UNK
     Route: 065
     Dates: start: 20110816, end: 20110826

REACTIONS (1)
  - DEATH [None]
